FAERS Safety Report 10040504 (Version 1)
Quarter: 2014Q1

REPORT INFORMATION
  Report Type: Spontaneous
  Country: CO (occurrence: CO)
  Receive Date: 20140327
  Receipt Date: 20140327
  Transmission Date: 20141002
  Serious: Yes (Other)
  Sender: FDA-Public Use
  Company Number: CO-ROCHE-1370369

PATIENT
  Age: 11 Year
  Sex: Female
  Weight: 46.04 kg

DRUGS (4)
  1. XOLAIR [Suspect]
     Indication: ASTHMA
     Route: 058
     Dates: start: 20131019
  2. FORMOTEROL [Concomitant]
  3. BUDESONIDE [Concomitant]
  4. MONTELUKAST [Concomitant]

REACTIONS (3)
  - Blood creatinine increased [Unknown]
  - Local swelling [Unknown]
  - Arthralgia [Unknown]
